FAERS Safety Report 19847931 (Version 1)
Quarter: 2021Q3

REPORT INFORMATION
  Report Type: Spontaneous
  Country: US (occurrence: US)
  Receive Date: 20210917
  Receipt Date: 20210917
  Transmission Date: 20211014
  Serious: No
  Sender: FDA-Public Use
  Company Number: US-AMNEAL PHARMACEUTICALS-2020-AMRX-02950

PATIENT
  Age: 78 Year
  Sex: Female

DRUGS (5)
  1. GABAPENTIN. [Suspect]
     Active Substance: GABAPENTIN
     Dosage: 100MG, 2 CAPSULES, 2X/DAY
     Route: 048
     Dates: start: 202009, end: 202009
  2. GABAPENTIN. [Suspect]
     Active Substance: GABAPENTIN
     Indication: PRODUCT USED FOR UNKNOWN INDICATION
     Dosage: UNK
     Route: 048
     Dates: start: 202009
  3. GABAPENTIN. [Suspect]
     Active Substance: GABAPENTIN
     Dosage: 300 MG (3 CAPSULE) + 100 MG (1 CAPSULE)
     Route: 048
  4. GABAPENTIN. [Suspect]
     Active Substance: GABAPENTIN
     Dosage: 100 MG
     Route: 048
     Dates: start: 202009
  5. GABAPENTIN. [Suspect]
     Active Substance: GABAPENTIN
     Dosage: 300MG, 3 CAPSULES
     Route: 048
     Dates: start: 202009, end: 20200919

REACTIONS (4)
  - Product taste abnormal [Unknown]
  - Product odour abnormal [Unknown]
  - Throat irritation [Recovered/Resolved]
  - Gastrooesophageal reflux disease [Recovered/Resolved]

NARRATIVE: CASE EVENT DATE: 202009
